FAERS Safety Report 24737927 (Version 1)
Quarter: 2024Q4

REPORT INFORMATION
  Report Type: Report from Study
  Country: DE (occurrence: DE)
  Receive Date: 20241216
  Receipt Date: 20241216
  Transmission Date: 20250115
  Serious: Yes (Death, Other)
  Sender: SANOFI AVENTIS
  Company Number: DE-DialogSolutions-SAAVPROD-PI709752-C4

PATIENT

DRUGS (6)
  1. ALEMTUZUMAB [Suspect]
     Active Substance: ALEMTUZUMAB
     Indication: T-cell prolymphocytic leukaemia
     Dosage: 10 MG, QCY (FROM DAY 1 TO DAY 3), EVERY 28 DAYS FOR UP TO 4 CYCLES (INDUCTION TREATMENT)
     Route: 058
  2. ALEMTUZUMAB [Suspect]
     Active Substance: ALEMTUZUMAB
     Dosage: 30 MG, QM, (DURING THE FIRST 6 MONTHS IT WAS ADMINISTERED MONTHLY AND IN ADDITION ONCE IN MONTH 10 A
     Route: 058
  3. ALEMTUZUMAB [Suspect]
     Active Substance: ALEMTUZUMAB
     Dosage: 30 MG, (AFTER 6 MONTHS ONCE IN MONTH 10 AND 13) (MAINTENANCE TREATMENT)
     Route: 058
  4. FLUDARABINE PHOSPHATE [Suspect]
     Active Substance: FLUDARABINE PHOSPHATE
     Indication: T-cell prolymphocytic leukaemia
     Dosage: 20 MG/M2, QCY, (FROM DAY 1 TO DAY 3), EVERY 28 DAYS FOR UP TO 4 CYCLES (INDUCTION TREATMENT)
     Route: 042
  5. CYCLOPHOSPHAMIDE [Suspect]
     Active Substance: CYCLOPHOSPHAMIDE
     Indication: T-cell prolymphocytic leukaemia
     Dosage: 200 MG/M2, QCY, (FROM DAY 1-DAY 3) EVERY 28 DAYS FOR UP TO 4 CYCLES (INDUCTION TREATMENT)
  6. MITOXANTRONE [Suspect]
     Active Substance: MITOXANTRONE HYDROCHLORIDE
     Indication: T-cell prolymphocytic leukaemia
     Dosage: 6 MG/M2, QCY, (ON DAY 1), EVERY 28 DAYS FOR UP TO 4 CYCLES (INDUCTION TREATMENT)
     Route: 042

REACTIONS (2)
  - Thrombocytopenia [Fatal]
  - Haemorrhage [Fatal]
